FAERS Safety Report 7969268-9 (Version None)
Quarter: 2011Q4

REPORT INFORMATION
  Report Type: 
  Country: None (occurrence: None)
  Receive Date: 20111209
  Receipt Date: 20111201
  Transmission Date: 20120403
  Serious: Yes (Hospitalization)
  Sender: FDA-Public Use
  Company Number: NL-ROCHE-1014341

PATIENT
  Sex: Male

DRUGS (3)
  1. EPIRUBICIN HYDROCHLORIDE [Suspect]
     Indication: GASTRIC CANCER
     Dosage: CUMULATIVE DOSE:294 MG
     Route: 042
     Dates: start: 20110929
  2. XELODA [Suspect]
     Indication: GASTRIC CANCER
     Dosage: CUMULATIVE DOSE:2X2000 MG
     Route: 048
     Dates: start: 20110929
  3. CISPLATIN [Suspect]
     Indication: GASTRIC CANCER
     Dosage: CUMULATIVE DOSE:360 MG
     Route: 042
     Dates: start: 20110929

REACTIONS (7)
  - PYREXIA [None]
  - HYPERVENTILATION [None]
  - PALMAR-PLANTAR ERYTHRODYSAESTHESIA SYNDROME [None]
  - MUCOSAL INFLAMMATION [None]
  - MALAISE [None]
  - DEHYDRATION [None]
  - NEUTROPENIA [None]
